FAERS Safety Report 7452089-3 (Version None)
Quarter: 2011Q2

REPORT INFORMATION
  Report Type: 
  Country: None (occurrence: None)
  Receive Date: 20110502
  Receipt Date: 20110427
  Transmission Date: 20111010
  Serious: Yes (Hospitalization)
  Sender: FDA-Public Use
  Company Number: GB-ELI_LILLY_AND_COMPANY-GB201104007450

PATIENT
  Age: 34 Year
  Sex: Female

DRUGS (5)
  1. METFORMIN [Concomitant]
     Indication: DIABETES MELLITUS
     Dosage: 1.5 G, UNKNOWN
     Route: 048
  2. RAMIPRIL [Concomitant]
     Dosage: 5 MG, UNKNOWN
     Route: 048
  3. BYETTA [Suspect]
     Indication: DIABETES MELLITUS
     Dosage: 5 UG, BID
     Route: 058
     Dates: start: 20110401, end: 20110403
  4. LANTUS [Concomitant]
     Indication: DIABETES MELLITUS
     Dosage: 35 IU, UNKNOWN
     Route: 058
  5. OMEPRAZOLE [Concomitant]
     Dosage: 20 MG, UNKNOWN
     Route: 048

REACTIONS (3)
  - BLOOD AMYLASE INCREASED [None]
  - OFF LABEL USE [None]
  - VOMITING [None]
